FAERS Safety Report 5557077-X (Version None)
Quarter: 2007Q4

REPORT INFORMATION
  Report Type: 
  Country: None (occurrence: None)
  Receive Date: 20071211
  Receipt Date: 20071211
  Transmission Date: 20080405
  Serious: Yes (Hospitalization)
  Sender: FDA-Public Use
  Company Number: None

PATIENT
  Sex: Female
  Weight: 63 kg

DRUGS (1)
  1. TAXOL [Suspect]
     Dosage: 215 MG
     Dates: end: 20071121

REACTIONS (3)
  - FEBRILE NEUTROPENIA [None]
  - MALAISE [None]
  - NAUSEA [None]
